FAERS Safety Report 8261061-5 (Version None)
Quarter: 2012Q2

REPORT INFORMATION
  Report Type: 
  Country: None (occurrence: None)
  Receive Date: 20120405
  Receipt Date: 20120329
  Transmission Date: 20120825
  Serious: Yes (Other)
  Sender: FDA-Public Use
  Company Number: PHHY2011CA95218

PATIENT
  Sex: Male

DRUGS (3)
  1. ZOLEDRONOC ACID [Suspect]
     Dosage: 5 MG, UNK
     Route: 042
     Dates: start: 20100728
  2. ZOLEDRONOC ACID [Suspect]
     Dosage: 5 MG, UNK
     Route: 042
     Dates: start: 20111019
  3. ZOLEDRONOC ACID [Suspect]
     Indication: OSTEOPOROSIS
     Dosage: 5 MG, UNK
     Route: 042
     Dates: start: 20090714

REACTIONS (6)
  - INFLUENZA LIKE ILLNESS [None]
  - TRIGEMINAL NEURALGIA [None]
  - HYPOAESTHESIA [None]
  - TOOTHACHE [None]
  - HEAD DISCOMFORT [None]
  - MUSCULOSKELETAL DISCOMFORT [None]
